FAERS Safety Report 21159524 (Version 1)
Quarter: 2022Q3

REPORT INFORMATION
  Report Type: Spontaneous
  Country: ES (occurrence: ES)
  Receive Date: 20220802
  Receipt Date: 20220802
  Transmission Date: 20221026
  Serious: Yes (Hospitalization, Disabling)
  Sender: FDA-Public Use
  Company Number: ES-PFIZER INC-PV202200025438

PATIENT
  Age: 30 Year
  Sex: Female

DRUGS (12)
  1. DICLOFENAC [Suspect]
     Active Substance: DICLOFENAC
     Indication: Plantar fasciitis
     Route: 065
  2. DICLOFENAC [Suspect]
     Active Substance: DICLOFENAC
     Indication: Tendonitis
  3. LYRICA [Suspect]
     Active Substance: PREGABALIN
     Indication: Tendonitis
     Route: 065
  4. LYRICA [Suspect]
     Active Substance: PREGABALIN
     Indication: Plantar fasciitis
  5. METHYLPREDNISOLONE SODIUM SUCCINATE [Suspect]
     Active Substance: METHYLPREDNISOLONE SODIUM SUCCINATE
     Indication: Plantar fasciitis
     Route: 065
  6. METHYLPREDNISOLONE SODIUM SUCCINATE [Suspect]
     Active Substance: METHYLPREDNISOLONE SODIUM SUCCINATE
     Indication: Tendonitis
  7. TRAMADOL [Suspect]
     Active Substance: TRAMADOL
     Indication: Tendonitis
     Route: 065
  8. TRAMADOL [Suspect]
     Active Substance: TRAMADOL
     Indication: Plantar fasciitis
  9. ACETAMINOPHEN [Suspect]
     Active Substance: ACETAMINOPHEN
     Indication: Plantar fasciitis
     Route: 065
  10. ACETAMINOPHEN [Suspect]
     Active Substance: ACETAMINOPHEN
     Indication: Tendonitis
  11. NAPROXEN [Suspect]
     Active Substance: NAPROXEN
     Indication: Tendonitis
     Route: 065
  12. NAPROXEN [Suspect]
     Active Substance: NAPROXEN
     Indication: Plantar fasciitis

REACTIONS (6)
  - Allodynia [Unknown]
  - Off label use [Unknown]
  - Drug ineffective for unapproved indication [Unknown]
  - Gait disturbance [Unknown]
  - Foot deformity [Unknown]
  - Oedema peripheral [Unknown]
